FAERS Safety Report 7035323-3 (Version None)
Quarter: 2010Q4

REPORT INFORMATION
  Report Type: 
  Country: None (occurrence: None)
  Receive Date: 20101008
  Receipt Date: 20101006
  Transmission Date: 20110411
  Serious: Yes (Hospitalization)
  Sender: FDA-Public Use
  Company Number: B0677917A

PATIENT
  Sex: Female

DRUGS (6)
  1. AUGMENTIN '125' [Suspect]
     Dosage: 1G THREE TIMES PER DAY
     Route: 048
     Dates: start: 20100706, end: 20100712
  2. PYOSTACINE [Suspect]
     Route: 048
     Dates: start: 20100712, end: 20100714
  3. GLICLAZIDE [Concomitant]
     Route: 065
  4. HEMIGOXINE NATIVELLE [Concomitant]
     Route: 065
  5. AMILORIDE HYDROCHLORIDE [Concomitant]
     Route: 065
  6. RILMENIDINE [Concomitant]
     Route: 065

REACTIONS (6)
  - CHEILITIS [None]
  - CONJUNCTIVITIS [None]
  - PALMAR ERYTHEMA [None]
  - PRURITUS [None]
  - RASH MACULAR [None]
  - SKIN LESION [None]
